FAERS Safety Report 7095422-7 (Version None)
Quarter: 2010Q4

REPORT INFORMATION
  Report Type: 
  Country: None (occurrence: None)
  Receive Date: 20101111
  Receipt Date: 20101108
  Transmission Date: 20110411
  Serious: Yes (Hospitalization)
  Sender: FDA-Public Use
  Company Number: IT-BRISTOL-MYERS SQUIBB COMPANY-15373103

PATIENT
  Age: 72 Year
  Sex: Male
  Weight: 73 kg

DRUGS (6)
  1. CISPLATIN [Suspect]
     Indication: NON-SMALL CELL LUNG CANCER
     Route: 042
     Dates: start: 20101014, end: 20101014
  2. ALIMTA [Suspect]
     Indication: NON-SMALL CELL LUNG CANCER
     Dosage: VIAL,140CT10-14OCT10 DURATION:1DAY,
     Route: 042
     Dates: start: 20101014, end: 20101014
  3. BEVACIZUMAB [Suspect]
     Indication: NON-SMALL CELL LUNG CANCER
     Dosage: 140CT10-14OCT10 DURATION:1DAY
     Dates: start: 20101014, end: 20101014
  4. FOLIC ACID [Concomitant]
     Dates: start: 20100926
  5. VITAMIN B-12 [Concomitant]
     Dates: start: 20100925
  6. DEXAMETHASONE [Concomitant]
     Dates: start: 20101013, end: 20101015

REACTIONS (2)
  - FATIGUE [None]
  - GASTROINTESTINAL PERFORATION [None]
